FAERS Safety Report 9107800 (Version 1)
Quarter: 2013Q1

REPORT INFORMATION
  Report Type: Spontaneous
  Country: US (occurrence: US)
  Receive Date: 20130221
  Receipt Date: 20130221
  Transmission Date: 20140127
  Serious: No
  Sender: FDA-Public Use
  Company Number: US-GALDERMA-US-GDP-12413487

PATIENT
  Sex: Female

DRUGS (1)
  1. DESONIDE [Suspect]
     Route: 061
     Dates: start: 20120327, end: 20120327

REACTIONS (1)
  - Skin hypopigmentation [Not Recovered/Not Resolved]
